FAERS Safety Report 6242474-X (Version None)
Quarter: 2009Q2

REPORT INFORMATION
  Report Type: 
  Country: None (occurrence: None)
  Receive Date: 20090622
  Receipt Date: 20090622
  Transmission Date: 20091009
  Serious: Yes (Other)
  Sender: FDA-Public Use
  Company Number: None

PATIENT
  Age: 51 Year
  Sex: Male
  Weight: 102.0593 kg

DRUGS (4)
  1. ZICAM SWAB MATRIXX INITIATIVES INC [Suspect]
     Indication: AGEUSIA
     Dosage: ONE SWAB USED FOR BOTH NOSTRIL ONCE NASAL
     Route: 045
     Dates: start: 20061010, end: 20061010
  2. ZICAM SWAB MATRIXX INITIATIVES INC [Suspect]
     Indication: ANOSMIA
     Dosage: ONE SWAB USED FOR BOTH NOSTRIL ONCE NASAL
     Route: 045
     Dates: start: 20061010, end: 20061010
  3. ZICAM NASAL SPRAY [Suspect]
     Indication: AGEUSIA
     Dosage: SPRAY ONCE NASAL
     Route: 045
     Dates: start: 20061010, end: 20061010
  4. ZICAM NASAL SPRAY [Suspect]
     Indication: ANOSMIA
     Dosage: SPRAY ONCE NASAL
     Route: 045
     Dates: start: 20061010, end: 20061010

REACTIONS (3)
  - AGEUSIA [None]
  - ANOSMIA [None]
  - NASAL DISCOMFORT [None]
